FAERS Safety Report 25616547 (Version 1)
Quarter: 2025Q3

REPORT INFORMATION
  Report Type: Report from Study
  Country: EU (occurrence: EU)
  Receive Date: 20250729
  Receipt Date: 20250729
  Transmission Date: 20251021
  Serious: Yes (Life-Threatening)
  Sender: ROCHE
  Company Number: None

PATIENT
  Sex: Female

DRUGS (21)
  1. RITUXIMAB [Suspect]
     Active Substance: RITUXIMAB
     Indication: Neuroblastoma recurrent
     Route: 065
  2. RITUXIMAB [Suspect]
     Active Substance: RITUXIMAB
     Indication: Metastasis
  3. ISOTRETINOIN [Suspect]
     Active Substance: ISOTRETINOIN
     Indication: Neuroblastoma recurrent
     Dosage: 160 MG/M2, BID (DIVIDED INTO 2 EQUAL DOSES GIVEN ORALLY TWICE DAILY FOR 14 DAYS) (FOLLOWED BY A 14-D
     Route: 048
  4. ISOTRETINOIN [Suspect]
     Active Substance: ISOTRETINOIN
     Indication: Metastasis
  5. TREOSULFAN [Suspect]
     Active Substance: TREOSULFAN
     Indication: Neuroblastoma recurrent
     Dosage: 10 G/M2, QD (DAY -8, -7 AND -6)
     Route: 065
  6. TREOSULFAN [Suspect]
     Active Substance: TREOSULFAN
     Indication: Stem cell transplant
  7. TREOSULFAN [Suspect]
     Active Substance: TREOSULFAN
     Indication: Metastasis
  8. MELPHALAN [Suspect]
     Active Substance: MELPHALAN
     Indication: Neuroblastoma recurrent
     Dosage: 70 MG/M2, QD (DAY -2 AND -1)
     Route: 065
  9. MELPHALAN [Suspect]
     Active Substance: MELPHALAN
     Indication: Stem cell transplant
  10. MELPHALAN [Suspect]
     Active Substance: MELPHALAN
     Indication: Metastasis
  11. FLUDARABINE PHOSPHATE [Suspect]
     Active Substance: FLUDARABINE PHOSPHATE
     Indication: Stem cell transplant
     Route: 065
  12. FLUDARABINE PHOSPHATE [Suspect]
     Active Substance: FLUDARABINE PHOSPHATE
     Indication: Neuroblastoma recurrent
  13. FLUDARABINE PHOSPHATE [Suspect]
     Active Substance: FLUDARABINE PHOSPHATE
     Indication: Metastasis
  14. THYMOCYTE IMMUNE GLOBULIN NOS [Suspect]
     Active Substance: THYMOCYTE IMMUNE GLOBULIN NOS
     Indication: Stem cell transplant
     Route: 065
  15. THYMOCYTE IMMUNE GLOBULIN NOS [Suspect]
     Active Substance: THYMOCYTE IMMUNE GLOBULIN NOS
     Indication: Neuroblastoma recurrent
  16. THYMOCYTE IMMUNE GLOBULIN NOS [Suspect]
     Active Substance: THYMOCYTE IMMUNE GLOBULIN NOS
     Indication: Metastasis
  17. THIOTEPA [Suspect]
     Active Substance: THIOTEPA
     Indication: Neuroblastoma recurrent
     Route: 065
  18. THIOTEPA [Suspect]
     Active Substance: THIOTEPA
     Indication: Stem cell transplant
  19. THIOTEPA [Suspect]
     Active Substance: THIOTEPA
     Indication: Metastasis
  20. DINUTUXIMAB BETA [Suspect]
     Active Substance: DINUTUXIMAB BETA
     Indication: Neuroblastoma recurrent
     Route: 065
  21. DINUTUXIMAB BETA [Suspect]
     Active Substance: DINUTUXIMAB BETA
     Indication: Metastasis

REACTIONS (2)
  - Leukopenia [Unknown]
  - Neutropenia [Unknown]
